FAERS Safety Report 9606703 (Version 2)
Quarter: 2013Q4

REPORT INFORMATION
  Report Type: Spontaneous
  Country: US (occurrence: US)
  Receive Date: 20131008
  Receipt Date: 20131008
  Transmission Date: 20140711
  Serious: No
  Sender: FDA-Public Use
  Company Number: US-AMGEN-USASP2013061797

PATIENT
  Age: 71 Year
  Sex: Female
  Weight: 63.95 kg

DRUGS (8)
  1. PROLIA [Suspect]
     Indication: OSTEOPOROSIS POSTMENOPAUSAL
     Dosage: 60 MG, Q6MO
     Route: 058
     Dates: start: 20121004, end: 20130408
  2. SINGULAIR [Concomitant]
     Dosage: 10 MG, QD
     Route: 048
  3. SONATA                             /00061001/ [Concomitant]
  4. ALLERGY MEDICATION [Concomitant]
  5. PREDNISONE [Concomitant]
     Indication: RASH
     Dosage: 5 MG, AS NECESSARY
     Route: 048
     Dates: start: 2011
  6. PREDNISONE [Concomitant]
     Indication: JOINT SWELLING
  7. ESTROPIPATE [Concomitant]
     Dosage: 0.75 MG, QD
     Route: 048
  8. PROZAC [Concomitant]
     Dosage: 20 MG, QD
     Route: 048

REACTIONS (2)
  - Joint swelling [Unknown]
  - Dermatitis [Recovering/Resolving]
